FAERS Safety Report 6762125-5 (Version None)
Quarter: 2010Q2

REPORT INFORMATION
  Report Type: 
  Country: None (occurrence: None)
  Receive Date: 20100609
  Receipt Date: 20100528
  Transmission Date: 20101027
  Serious: Yes (Hospitalization)
  Sender: FDA-Public Use
  Company Number: FR-SANOFI-AVENTIS-2010SA030905

PATIENT
  Age: 40 Year
  Sex: Female

DRUGS (22)
  1. IMOVANE [Suspect]
     Route: 048
     Dates: start: 20081118, end: 20090201
  2. LARGACTIL [Suspect]
     Dosage: DOSE:60 UNIT(S)
     Route: 048
     Dates: start: 20081118
  3. ZOLPIDEM [Suspect]
     Route: 048
     Dates: start: 20081126, end: 20081201
  4. NEULEPTIL [Suspect]
     Dosage: DOSE:50 UNIT(S)
     Route: 048
     Dates: start: 20090225
  5. AMITRIPTYLINE HCL [Suspect]
     Route: 048
     Dates: end: 20081001
  6. AMITRIPTYLINE HCL [Suspect]
     Route: 048
     Dates: start: 20081116, end: 20081116
  7. LEXOMIL [Suspect]
     Route: 048
     Dates: end: 20081001
  8. LEXOMIL [Suspect]
     Route: 048
     Dates: start: 20081116, end: 20081116
  9. RIVOTRIL [Suspect]
     Dosage: DOSE:2 UNIT(S)
     Route: 048
  10. LYSANXIA [Suspect]
     Route: 065
     Dates: end: 20081001
  11. TOPIRAMATE [Suspect]
     Route: 065
     Dates: end: 20081001
  12. ZYPREXA [Suspect]
     Route: 048
     Dates: start: 20081001, end: 20081125
  13. ZYPREXA [Suspect]
     Route: 048
     Dates: start: 20081126, end: 20090212
  14. SERESTA [Suspect]
     Route: 048
     Dates: start: 20081118
  15. SPASFON-LYOC [Suspect]
     Indication: DRUG USE FOR UNKNOWN INDICATION
     Route: 048
     Dates: start: 20081120
  16. EFFEXOR [Suspect]
     Route: 048
     Dates: start: 20081120
  17. THERALENE [Suspect]
     Dosage: DOSE:100 UNIT(S)
     Route: 048
     Dates: start: 20090115
  18. SEROPLEX [Suspect]
     Route: 048
     Dates: start: 20090213, end: 20090228
  19. BIPERIDEN HYDROCHLORIDE TAB [Suspect]
     Route: 048
     Dates: start: 20090213
  20. AMOXICILLIN [Suspect]
     Indication: DRUG USE FOR UNKNOWN INDICATION
     Route: 048
     Dates: start: 20080225
  21. GYNO-PEVARYL [Concomitant]
     Route: 065
     Dates: start: 20081126, end: 20081202
  22. FLAGYL [Concomitant]
     Route: 048
     Dates: start: 20081126, end: 20081202

REACTIONS (2)
  - HELLP SYNDROME [None]
  - INTRA-UTERINE DEATH [None]
